FAERS Safety Report 10007407 (Version 1)
Quarter: 2014Q1

REPORT INFORMATION
  Report Type: Spontaneous
  Country: US (occurrence: US)
  Receive Date: 20140313
  Receipt Date: 20140313
  Transmission Date: 20141002
  Serious: Yes (Hospitalization, Other)
  Sender: FDA-Public Use
  Company Number: US-BAXTER-2014BAX011589

PATIENT
  Age: 42 Year
  Sex: Female

DRUGS (5)
  1. GAMMAGARD LIQUID [Suspect]
     Indication: PRIMARY IMMUNODEFICIENCY SYNDROME
     Route: 065
  2. GAMMAGARD LIQUID [Suspect]
     Route: 065
     Dates: start: 201309
  3. GAMMAGARD LIQUID [Suspect]
     Route: 065
     Dates: start: 201310
  4. GAMMAGARD LIQUID [Suspect]
     Route: 058
     Dates: start: 201402
  5. HIZENTRA [Suspect]
     Indication: PRIMARY IMMUNODEFICIENCY SYNDROME
     Route: 058
     Dates: start: 201401

REACTIONS (12)
  - Throat tightness [Unknown]
  - Influenza [Unknown]
  - Migraine [Unknown]
  - Nausea [Unknown]
  - Diarrhoea [Unknown]
  - Influenza like illness [Unknown]
  - Adverse drug reaction [Unknown]
  - Chills [Unknown]
  - Immunoglobulins decreased [Unknown]
  - Malaise [Unknown]
  - Sinus disorder [Unknown]
  - Respiratory disorder [Unknown]
